FAERS Safety Report 5259817-6 (Version None)
Quarter: 2007Q1

REPORT INFORMATION
  Report Type: 
  Country: None (occurrence: None)
  Receive Date: 20070309
  Receipt Date: 20070228
  Transmission Date: 20070707
  Serious: Yes (Hospitalization, Other)
  Sender: FDA-Public Use
  Company Number: 2006UW00434

PATIENT
  Age: 579 Month
  Sex: Male
  Weight: 104.5 kg

DRUGS (3)
  1. SEROQUEL [Suspect]
     Indication: SCHIZOPHRENIA
     Route: 048
     Dates: start: 20010101, end: 20040101
  2. ABILIFY [Concomitant]
     Dates: start: 20040101
  3. RISPERDAL [Concomitant]
     Indication: SCHIZOPHRENIA
     Dates: start: 20030818, end: 20030101

REACTIONS (3)
  - DIABETES MELLITUS [None]
  - DIABETIC COMPLICATION [None]
  - VASCULAR BYPASS GRAFT [None]
